FAERS Safety Report 4289498-X (Version None)
Quarter: 2004Q1

REPORT INFORMATION
  Report Type: 
  Country: None (occurrence: None)
  Receive Date: 20040126
  Receipt Date: 20031031
  Transmission Date: 20041129
  Serious: No
  Sender: FDA-Public Use
  Company Number: USA030537559

PATIENT
  Age: 63 Year
  Sex: Female
  Weight: 64 kg

DRUGS (2)
  1. FORTEO [Suspect]
     Indication: OSTEOPOROSIS
     Dosage: 20 UG/DAY
     Dates: start: 20030301
  2. PERCOCET [Concomitant]

REACTIONS (6)
  - ARTHRALGIA [None]
  - FOOD POISONING [None]
  - INJECTION SITE PAIN [None]
  - INSOMNIA [None]
  - SCAR [None]
  - SLEEP DISORDER [None]
